FAERS Safety Report 24137969 (Version 1)
Quarter: 2024Q3

REPORT INFORMATION
  Report Type: Spontaneous
  Country: US (occurrence: None)
  Receive Date: 20240725
  Receipt Date: 20240725
  Transmission Date: 20241017
  Serious: No
  Sender: Public
  Company Number: None

PATIENT
  Age: 77 Year
  Sex: Male
  Weight: 102.06 kg

DRUGS (14)
  1. COREG [Suspect]
     Active Substance: CARVEDILOL
     Indication: Hypertension
     Dosage: TWICE A DAY
     Dates: start: 20231207, end: 20240412
  2. COREG [Suspect]
     Active Substance: CARVEDILOL
  3. ACETAMINOPHEN [Concomitant]
     Active Substance: ACETAMINOPHEN
  4. APIXABAN [Concomitant]
  5. CARBOXYMETHYLCELLULOSE [Concomitant]
  6. Cholecalciferol (vitamin D3) [Concomitant]
  7. COENZYME Q10 [Concomitant]
     Active Substance: DIETARY SUPPLEMENT\UBIDECARENONE
  8. Cyanocobalamin (vitamin B-12( [Concomitant]
  9. LIPOIC ACID [Concomitant]
  10. MAGNESIUM [Concomitant]
     Active Substance: MAGNESIUM
  11. METOPROLOL SUCCINATE [Concomitant]
     Active Substance: METOPROLOL SUCCINATE
  12. OXYBUTYNIN XL [Concomitant]
  13. PRESERVISION AREDS ORAL [Concomitant]
  14. TERAZOSIN [Concomitant]
     Active Substance: TERAZOSIN HYDROCHLORIDE

REACTIONS (2)
  - Nightmare [None]
  - Drug hypersensitivity [None]

NARRATIVE: CASE EVENT DATE: 20231207
